FAERS Safety Report 7225481-X (Version None)
Quarter: 2011Q1

REPORT INFORMATION
  Report Type: 
  Country: None (occurrence: None)
  Receive Date: 20110113
  Receipt Date: 20110106
  Transmission Date: 20110831
  Serious: Yes (Hospitalization)
  Sender: FDA-Public Use
  Company Number: US-MERCK-1101USA00580

PATIENT
  Age: 60 Year
  Sex: Male

DRUGS (3)
  1. DOXYCYCLINE [Concomitant]
     Indication: CELLULITIS
     Route: 065
  2. INSULIN [Concomitant]
     Indication: DIABETES MELLITUS
     Route: 065
  3. PRINIVIL [Suspect]
     Indication: HYPERTENSION
     Route: 048

REACTIONS (2)
  - DERMATITIS EXFOLIATIVE [None]
  - ERYTHRODERMIC PSORIASIS [None]
